FAERS Safety Report 8577947 (Version 2)
Quarter: 2012Q4

REPORT INFORMATION
  Report Type: 
  Country: US (occurrence: US)
  Receive Date: 20120524
  Receipt Date: 20121010
  Transmission Date: 20130627
  Serious: No
  Sender: FDA-Public Use
  Company Number: US-PFIZER INC-2012122288

PATIENT
  Sex: Female

DRUGS (2)
  1. LYRICA [Suspect]
     Indication: FIBROMYALGIA
     Dosage: 50 mg, 1x/day
  2. LYRICA [Suspect]
     Dosage: 75 mg, 4x/day

REACTIONS (3)
  - Pain [Unknown]
  - Incorrect dose administered [Unknown]
  - Chest pain [Unknown]
